FAERS Safety Report 6225093-0 (Version None)
Quarter: 2009Q2

REPORT INFORMATION
  Report Type: 
  Country: None (occurrence: None)
  Receive Date: 20090612
  Receipt Date: 20090408
  Transmission Date: 20091009
  Serious: No
  Sender: FDA-Public Use
  Company Number: US-ABBOTT-09P-163-0567086-00

PATIENT
  Sex: Female
  Weight: 113.5 kg

DRUGS (3)
  1. HUMIRA [Suspect]
     Indication: PSORIASIS
     Dosage: LOADING DOSE
     Dates: start: 20090304, end: 20090304
  2. HUMIRA [Suspect]
  3. HUMIRA [Suspect]

REACTIONS (3)
  - PAIN IN EXTREMITY [None]
  - PYREXIA [None]
  - RASH GENERALISED [None]
